FAERS Safety Report 8887787 (Version 1)
Quarter: 2012Q4

REPORT INFORMATION
  Report Type: 
  Country: US (occurrence: US)
  Receive Date: 20121106
  Receipt Date: 20121106
  Transmission Date: 20130627
  Serious: Yes (Hospitalization)
  Sender: FDA-Public Use
  Company Number: US-ELI_LILLY_AND_COMPANY-US201210009466

PATIENT
  Sex: Male

DRUGS (3)
  1. ADCIRCA [Suspect]
  2. LETAIRIS [Concomitant]
     Indication: PULMONARY ARTERIAL HYPERTENSION
     Dosage: 5 mg, qd
     Dates: start: 20120605
  3. EPOPROSTENOL [Concomitant]

REACTIONS (7)
  - Pneumonia [Unknown]
  - Pyrexia [Unknown]
  - Pulmonary arterial hypertension [Unknown]
  - Device related infection [Unknown]
  - Pain in jaw [Unknown]
  - Throat tightness [Unknown]
  - Headache [Unknown]
